FAERS Safety Report 22089317 (Version 2)
Quarter: 2023Q1

REPORT INFORMATION
  Report Type: Report from Study
  Country: CA (occurrence: CA)
  Receive Date: 20230313
  Receipt Date: 20230317
  Transmission Date: 20230418
  Serious: Yes (Other)
  Sender: FDA-Public Use
  Company Number: CA-SAMSUNG BIOEPIS-SB-2023-06053

PATIENT
  Age: 60 Year
  Sex: Female

DRUGS (1)
  1. ETANERCEPT [Suspect]
     Active Substance: ETANERCEPT
     Indication: Psoriatic arthropathy
     Dosage: 50 MG/ML;
     Route: 065
     Dates: start: 20230210

REACTIONS (8)
  - Heart rate increased [Unknown]
  - Dizziness [Not Recovered/Not Resolved]
  - Hypoaesthesia [Unknown]
  - Vertigo [Unknown]
  - Hypertension [Unknown]
  - Fatigue [Unknown]
  - Head discomfort [Not Recovered/Not Resolved]
  - Myocardial infarction [Unknown]

NARRATIVE: CASE EVENT DATE: 20230210
